FAERS Safety Report 16400172 (Version 1)
Quarter: 2019Q2

REPORT INFORMATION
  Report Type: Spontaneous
  Country: US (occurrence: US)
  Receive Date: 20190606
  Receipt Date: 20190606
  Transmission Date: 20190711
  Serious: No
  Sender: FDA-Public Use
  Company Number: US-ALLERGAN-1914577US

PATIENT
  Sex: Female

DRUGS (1)
  1. KYBELLA [Suspect]
     Active Substance: DEOXYCHOLIC ACID
     Indication: LIPOLYSIS PROCEDURE
     Dosage: 4 ML, SINGLE
     Route: 058
     Dates: start: 20170616, end: 20170616

REACTIONS (2)
  - Nerve injury [Recovering/Resolving]
  - Injection site induration [Recovering/Resolving]
